FAERS Safety Report 15904467 (Version 6)
Quarter: 2019Q3

REPORT INFORMATION
  Report Type: Spontaneous
  Country: JP (occurrence: JP)
  Receive Date: 20190204
  Receipt Date: 20190906
  Transmission Date: 20191004
  Serious: Yes (Other)
  Sender: FDA-Public Use
  Company Number: PHJP2019JP001037

PATIENT
  Age: 75 Year
  Sex: Male

DRUGS (2)
  1. NEORAL [Suspect]
     Active Substance: CYCLOSPORINE
     Indication: PEMPHIGOID
     Dosage: UNK
     Route: 048
  2. SITAGLIPTIN [Concomitant]
     Active Substance: SITAGLIPTIN
     Indication: NEURODERMATITIS
     Dosage: UNK
     Route: 065

REACTIONS (9)
  - Pemphigoid [Recovered/Resolved]
  - Scab [Unknown]
  - Pruritus [Recovered/Resolved]
  - Condition aggravated [Recovered/Resolved]
  - Nodule [Unknown]
  - Infective spondylitis [Recovered/Resolved]
  - Rash [Recovered/Resolved with Sequelae]
  - Skin erosion [Unknown]
  - Product use in unapproved indication [Unknown]
